FAERS Safety Report 15560338 (Version 1)
Quarter: 2018Q4

REPORT INFORMATION
  Report Type: Spontaneous
  Country: US (occurrence: US)
  Receive Date: 20181029
  Receipt Date: 20181029
  Transmission Date: 20190205
  Serious: Yes (Other)
  Sender: FDA-Public Use
  Company Number: US-GLENMARK PHARMACEUTICALS-2018GMK037982

PATIENT
  Age: 74 Year
  Sex: Male

DRUGS (9)
  1. IBRUTINIB [Suspect]
     Active Substance: IBRUTINIB
     Dosage: 420 MG, UNK
     Route: 065
  2. POTASSIUM CHLORIDE. [Concomitant]
     Active Substance: POTASSIUM CHLORIDE
     Indication: HYPOKALAEMIA
     Dosage: 20 MEQ, OD
     Route: 065
  3. ALLOPURINOL. [Concomitant]
     Active Substance: ALLOPURINOL
     Indication: GOUT
     Dosage: INCREASED TO 300 MG EVERY MORNING AND 150 MG EVERY EVENING
     Route: 065
  4. SULFAMETHOXAZOLE/TRIMETHOPRIM [Suspect]
     Active Substance: SULFAMETHOXAZOLE\TRIMETHOPRIM
     Indication: POSTOPERATIVE WOUND INFECTION
     Dosage: UNK, BID
     Route: 065
  5. IBRUTINIB [Suspect]
     Active Substance: IBRUTINIB
     Indication: LYMPHADENOPATHY
     Dosage: REDUCED DOSE OF 280 MG DAILY WITH A GOAL OF TITRATING TO 560 MG DAILY
     Route: 065
  6. ALLOPURINOL. [Concomitant]
     Active Substance: ALLOPURINOL
     Dosage: 300 MG, UNK
     Route: 065
  7. RITUXIMAB. [Concomitant]
     Active Substance: RITUXIMAB
     Indication: HYPOKALAEMIA
     Dosage: MAINTENANCE CHEMOTHERAPY; CYCLICAL
     Route: 065
  8. ALLOPURINOL. [Concomitant]
     Active Substance: ALLOPURINOL
     Dosage: INCREASED TO 300 MG EVERY MORNING AND 150 MG EVERY EVENING
     Route: 065
  9. POTASSIUM CHLORIDE. [Concomitant]
     Active Substance: POTASSIUM CHLORIDE
     Dosage: DOSE WAS DECREASED FROM 20 MEQ DAILY TO 10 MEQ DAILY
     Route: 065

REACTIONS (3)
  - Hyperkalaemia [Recovering/Resolving]
  - Hyperuricaemia [Unknown]
  - Blood creatinine increased [Recovering/Resolving]
